FAERS Safety Report 20586757 (Version 2)
Quarter: 2022Q1

REPORT INFORMATION
  Report Type: Report from Study
  Country: CA (occurrence: CA)
  Receive Date: 20220313
  Receipt Date: 20220315
  Transmission Date: 20220424
  Serious: Yes (Other)
  Sender: FDA-Public Use
  Company Number: CA-NOVARTISPH-NVSC2022CA056619

PATIENT
  Sex: Female

DRUGS (5)
  1. DICLOFENAC [Suspect]
     Active Substance: DICLOFENAC
     Indication: Product used for unknown indication
     Dosage: 50 MG, BID
     Route: 048
  2. CITALOPRAM [Suspect]
     Active Substance: CITALOPRAM HYDROBROMIDE
     Indication: Product used for unknown indication
     Dosage: 10 MG, QD
     Route: 048
     Dates: start: 2016
  3. SYNTHROID [Concomitant]
     Active Substance: LEVOTHYROXINE SODIUM
     Indication: Product used for unknown indication
     Dosage: UNK UNK, OTHER
     Route: 048
     Dates: start: 1994
  4. CELECOXIB [Concomitant]
     Active Substance: CELECOXIB
     Indication: Product used for unknown indication
     Dosage: UNK, OTHER
     Route: 048
     Dates: start: 20220113
  5. NAPROXEN [Concomitant]
     Active Substance: NAPROXEN
     Indication: Product used for unknown indication
     Dosage: UNK UNK, BID
     Route: 065

REACTIONS (5)
  - Uveitis [Unknown]
  - Spinal pain [Unknown]
  - Inflammation [Unknown]
  - Musculoskeletal stiffness [Unknown]
  - Drug ineffective [Unknown]
